FAERS Safety Report 15244108 (Version 1)
Quarter: 2018Q3

REPORT INFORMATION
  Report Type: Spontaneous
  Country: US (occurrence: US)
  Receive Date: 20180806
  Receipt Date: 20180806
  Transmission Date: 20181010
  Serious: Yes (Other)
  Sender: FDA-Public Use
  Company Number: US-PFIZER INC-2018309199

PATIENT
  Age: 68 Year
  Sex: Male
  Weight: 85 kg

DRUGS (1)
  1. GENOTROPIN MQ [Suspect]
     Active Substance: SOMATROPIN
     Indication: HYPOTHALAMO-PITUITARY DISORDER
     Dosage: 0.2 MG, ALTERNATE DAY, INJECTION IN STOMACH
     Dates: start: 2004

REACTIONS (3)
  - Tendon injury [Unknown]
  - Joint injury [Unknown]
  - Muscle injury [Unknown]

NARRATIVE: CASE EVENT DATE: 20180712
